FAERS Safety Report 5619280-X (Version None)
Quarter: 2008Q1

REPORT INFORMATION
  Report Type: 
  Country: None (occurrence: None)
  Receive Date: 20080205
  Receipt Date: 20080121
  Transmission Date: 20080703
  Serious: Yes (Other)
  Sender: FDA-Public Use
  Company Number: 200801IM000017

PATIENT

DRUGS (1)
  1. INTERFERON GAMMA-1B [Suspect]

REACTIONS (1)
  - APOPTOSIS [None]
